FAERS Safety Report 19035351 (Version 1)
Quarter: 2021Q1

REPORT INFORMATION
  Report Type: Other
  Country: US (occurrence: US)
  Receive Date: 20210320
  Receipt Date: 20210320
  Transmission Date: 20210420
  Serious: Yes (Disabling)
  Sender: FDA-Public Use
  Company Number: US-ACORDA-ACO_168063_2021

PATIENT
  Sex: Male

DRUGS (4)
  1. INBRIJA [Suspect]
     Active Substance: LEVODOPA
     Indication: ON AND OFF PHENOMENON
  2. NEUPRO [Concomitant]
     Active Substance: ROTIGOTINE
     Indication: PRODUCT USED FOR UNKNOWN INDICATION
     Dosage: PATCH, QD
     Route: 065
  3. RYTARY [Concomitant]
     Active Substance: CARBIDOPA\LEVODOPA
     Indication: PRODUCT USED FOR UNKNOWN INDICATION
     Dosage: 36.25/45 MG, TID
     Route: 065
  4. INBRIJA [Suspect]
     Active Substance: LEVODOPA
     Indication: PARKINSON^S DISEASE
     Dosage: 84 MILLIGRAM, PRN (2 CAPSULES OF 42MG AS NEEDED) NOT TO EXCEED 5 DOSES A DAY
     Dates: start: 20210225

REACTIONS (15)
  - Product communication issue [Unknown]
  - Ill-defined disorder [Unknown]
  - Device issue [Unknown]
  - Dizziness [Unknown]
  - Freezing phenomenon [Unknown]
  - Syncope [Unknown]
  - Dyskinesia [Unknown]
  - Packaging design issue [Unknown]
  - Tremor [Unknown]
  - Mobility decreased [Unknown]
  - Device defective [Unknown]
  - Gait inability [Unknown]
  - Feeling abnormal [Unknown]
  - Parkinson^s disease [Unknown]
  - Prescribed underdose [Unknown]
